FAERS Safety Report 13935122 (Version 1)
Quarter: 2017Q3

REPORT INFORMATION
  Report Type: Spontaneous
  Country: US (occurrence: None)
  Receive Date: 20170901
  Receipt Date: 20170901
  Transmission Date: 20171127
  Serious: Yes (Life-Threatening, Hospitalization)
  Sender: FDA-Public Use
  Company Number: None

PATIENT
  Age: 55 Year
  Sex: Male
  Weight: 75 kg

DRUGS (1)
  1. TEMOZOLOMIDE. [Suspect]
     Active Substance: TEMOZOLOMIDE
     Indication: GLIOBLASTOMA
     Route: 048
     Dates: start: 20170331, end: 20170524

REACTIONS (5)
  - Thrombocytopenia [None]
  - Leukopenia [None]
  - Anaemia [None]
  - Bone marrow failure [None]
  - Febrile neutropenia [None]

NARRATIVE: CASE EVENT DATE: 20170524
